FAERS Safety Report 23129548 (Version 1)
Quarter: 2023Q4

REPORT INFORMATION
  Report Type: Spontaneous
  Country: US (occurrence: US)
  Receive Date: 20231031
  Receipt Date: 20231031
  Transmission Date: 20240110
  Serious: Yes (Hospitalization, Other)
  Sender: FDA-Public Use
  Company Number: US-HIKMA PHARMACEUTICALS USA INC.-US-H14001-23-66383

PATIENT
  Age: 17 Year
  Sex: Male
  Weight: 65.4 kg

DRUGS (5)
  1. MERCAPTOPURINE [Suspect]
     Active Substance: MERCAPTOPURINE
     Indication: B-cell type acute leukaemia
     Dosage: 125 UNK, QD
     Route: 048
     Dates: start: 20220616
  2. METHOTREXATE [Suspect]
     Active Substance: METHOTREXATE
     Indication: B-cell type acute leukaemia
     Dosage: 35 MILLIGRAM
     Route: 048
     Dates: start: 20220606
  3. PREDNISONE [Suspect]
     Active Substance: PREDNISONE
     Indication: B-cell type acute leukaemia
     Dosage: 25 MILLIGRAM, ONCE
     Route: 048
     Dates: start: 20220616
  4. RUXOLITINIB [Suspect]
     Active Substance: RUXOLITINIB
     Indication: B-cell type acute leukaemia
     Dosage: 85 MILLIGRAM, QD
     Route: 048
     Dates: start: 20220616
  5. VINCRISTINE [Suspect]
     Active Substance: VINCRISTINE
     Indication: B-cell type acute leukaemia
     Dosage: 2 MILLIGRAM, ONCE
     Route: 042
     Dates: start: 20220504

REACTIONS (7)
  - Febrile neutropenia [Recovered/Resolved]
  - Cough [Unknown]
  - Nasal congestion [Unknown]
  - Pyrexia [Unknown]
  - Otitis media acute [Unknown]
  - C-reactive protein increased [Unknown]
  - Red blood cell sedimentation rate increased [Unknown]

NARRATIVE: CASE EVENT DATE: 20230910
